FAERS Safety Report 8791703 (Version 1)
Quarter: 2012Q4

REPORT INFORMATION
  Report Type: 
  Country: TH (occurrence: TH)
  Receive Date: 20120918
  Receipt Date: 20120918
  Transmission Date: 20130627
  Serious: Yes (Other)
  Sender: FDA-Public Use
  Company Number: PHHY2012TH079863

PATIENT
  Age: 47 Year
  Sex: Male

DRUGS (6)
  1. CICLOSPORIN [Suspect]
     Indication: PROPHYLAXIS AGAINST GRAFT VERSUS HOST DISEASE
     Dosage: 2-5 mg/kg, per day
  2. METHYLPREDNISOLONE [Concomitant]
  3. CRAVIT [Concomitant]
  4. TOBRADEX [Concomitant]
  5. SERUM PHYSIOLOGICAL [Concomitant]
  6. ARTIFICIAL TEARS [Concomitant]

REACTIONS (2)
  - Corneal epithelium defect [Unknown]
  - Keratitis bacterial [Unknown]
